FAERS Safety Report 16935064 (Version 1)
Quarter: 2019Q4

REPORT INFORMATION
  Report Type: Spontaneous
  Country: US (occurrence: US)
  Receive Date: 20191018
  Receipt Date: 20191018
  Transmission Date: 20200122
  Serious: No
  Sender: FDA-Public Use
  Company Number: US-PFIZER INC-2019036660

PATIENT
  Age: 44 Year
  Sex: Female

DRUGS (1)
  1. SOMAVERT [Suspect]
     Active Substance: PEGVISOMANT
     Dosage: 10 MG, TWICE WEEKLY (SOMAVERT 10MG 2 DAYS A WEEK, MON THURS OR TUESDAY, FRIDAY)

REACTIONS (3)
  - Product use issue [Unknown]
  - Off label use [Unknown]
  - Insulin-like growth factor increased [Unknown]
